FAERS Safety Report 6518261-1 (Version None)
Quarter: 2009Q4

REPORT INFORMATION
  Report Type: 
  Country: None (occurrence: None)
  Receive Date: 20091223
  Receipt Date: 20091223
  Transmission Date: 20100525
  Serious: Yes (Disabling)
  Sender: FDA-Public Use
  Company Number: None

PATIENT
  Sex: Female
  Weight: 70.3075 kg

DRUGS (1)
  1. ALENDRONATE SODIUM [Suspect]
     Indication: OSTEOPOROSIS
     Dosage: 1 TAB ONCE A WEEK ORAL
     Route: 048
     Dates: start: 20090512, end: 20090825

REACTIONS (2)
  - APHTHOUS STOMATITIS [None]
  - DRUG HYPERSENSITIVITY [None]
